FAERS Safety Report 20664157 (Version 1)
Quarter: 2022Q2

REPORT INFORMATION
  Report Type: Spontaneous
  Country: FR (occurrence: FR)
  Receive Date: 20220401
  Receipt Date: 20220401
  Transmission Date: 20220721
  Serious: Yes (Hospitalization)
  Sender: FDA-Public Use
  Company Number: None

PATIENT
  Age: 1 Day

DRUGS (3)
  1. PAROXETINE MESYLATE [Suspect]
     Active Substance: PAROXETINE MESYLATE
     Indication: COVID-19 immunisation
     Dosage: 10MG, DURATION 334DAYS
     Route: 064
     Dates: start: 2021, end: 202112
  2. COMIRNATY [Suspect]
     Active Substance: TOZINAMERAN
     Indication: COVID-19 immunisation
     Dosage: D2, 1DF
     Route: 030
     Dates: start: 20211119
  3. COMIRNATY [Suspect]
     Active Substance: TOZINAMERAN
     Dosage: D1, 1DF,LEFT ARM
     Route: 030
     Dates: start: 20211026

REACTIONS (2)
  - Perinatal stroke [Recovering/Resolving]
  - Pulmonary arterial hypertension [Recovering/Resolving]

NARRATIVE: CASE EVENT DATE: 20211227
